FAERS Safety Report 8804769 (Version 1)
Quarter: 2012Q4

REPORT INFORMATION
  Report Type: 
  Country: US (occurrence: US)
  Receive Date: 20120924
  Receipt Date: 20120924
  Transmission Date: 20130627
  Serious: No
  Sender: FDA-Public Use
  Company Number: US-009507513-1208USA009675

PATIENT
  Sex: Male

DRUGS (4)
  1. PEGINTRON [Suspect]
     Indication: HEPATITIS C
     Dosage: UNK
     Dates: start: 20120723
  2. REBETOL [Suspect]
     Indication: HEPATITIS C
     Dosage: UNK
     Dates: start: 20120723
  3. VICTRELIS [Suspect]
     Indication: HEPATITIS C
     Dosage: UNK
     Dates: start: 20120820
  4. SUBOXONE [Concomitant]
     Indication: DRUG DEPENDENCE

REACTIONS (5)
  - Gastrooesophageal reflux disease [Unknown]
  - Constipation [Unknown]
  - Pollakiuria [Unknown]
  - Dizziness [Unknown]
  - Weight decreased [Unknown]
